FAERS Safety Report 22089015 (Version 1)
Quarter: 2023Q1

REPORT INFORMATION
  Report Type: Spontaneous
  Country: CN (occurrence: CN)
  Receive Date: 20230313
  Receipt Date: 20230313
  Transmission Date: 20230418
  Serious: Yes (Hospitalization)
  Sender: FDA-Public Use
  Company Number: CN-MYLANLABS-2023M1025421

PATIENT
  Age: 53 Year
  Sex: Male

DRUGS (3)
  1. CELEBREX [Suspect]
     Active Substance: CELECOXIB
     Indication: Migraine
     Dosage: 0.2 GRAM, QD
     Route: 048
     Dates: start: 20230208, end: 20230225
  2. LYRICA [Suspect]
     Active Substance: PREGABALIN
     Indication: Migraine
     Dosage: 75 MILLIGRAM, BID
     Route: 048
     Dates: start: 20230208, end: 20230225
  3. METHYLCOBALAMIN [Suspect]
     Active Substance: METHYLCOBALAMIN
     Indication: Migraine
     Dosage: 1 DOSAGE FORM, TID
     Route: 048
     Dates: start: 20230208, end: 20230225

REACTIONS (1)
  - Dermatitis [Recovering/Resolving]

NARRATIVE: CASE EVENT DATE: 20230301
